FAERS Safety Report 5442803-0 (Version None)
Quarter: 2007Q3

REPORT INFORMATION
  Report Type: 
  Country: None (occurrence: None)
  Receive Date: 20070904
  Receipt Date: 20070820
  Transmission Date: 20080115
  Serious: No
  Sender: FDA-Public Use
  Company Number: US-BOEHRINGER INGELHEIM PHARMACEUTICALS, INC.-2007-BP-18720BP

PATIENT
  Sex: Male

DRUGS (3)
  1. MIRAPEX [Suspect]
     Indication: PARKINSON'S DISEASE
     Route: 048
     Dates: start: 20020101
  2. SINEMET CR [Concomitant]
  3. AZILECT [Concomitant]

REACTIONS (3)
  - DIZZINESS [None]
  - HYPOTENSION [None]
  - SYNCOPE [None]
